FAERS Safety Report 7746129-1 (Version None)
Quarter: 2011Q3

REPORT INFORMATION
  Report Type: 
  Country: None (occurrence: None)
  Receive Date: 20110913
  Receipt Date: 20110831
  Transmission Date: 20111222
  Serious: Yes (Hospitalization)
  Sender: FDA-Public Use
  Company Number: US-ELI_LILLY_AND_COMPANY-US201109000771

PATIENT
  Sex: Female

DRUGS (2)
  1. SYNTHROID [Concomitant]
  2. FORTEO [Suspect]
     Indication: OSTEOPOROSIS
     Dosage: 20 UG, QD
     Route: 065
     Dates: start: 20100901

REACTIONS (3)
  - ANKLE FRACTURE [None]
  - FIBULA FRACTURE [None]
  - TIBIA FRACTURE [None]
